FAERS Safety Report 5109981-4 (Version None)
Quarter: 2006Q3

REPORT INFORMATION
  Report Type: 
  Country: None (occurrence: None)
  Receive Date: 20060919
  Receipt Date: 20060919
  Transmission Date: 20061208
  Serious: Yes (Hospitalization)
  Sender: FDA-Public Use
  Company Number: None

PATIENT
  Age: 85 Year
  Sex: Female
  Weight: 57.8 kg

DRUGS (13)
  1. DIGOXIN [Suspect]
     Indication: CARDIAC FAILURE CONGESTIVE
     Dosage: 125 MCG DAILY ORAL CHRONIC INCREASED FROM QOD TO DAILY
     Route: 048
     Dates: start: 20060609
  2. PRAVASTATIN [Concomitant]
  3. METOPROLOL [Concomitant]
  4. MACRODANTIN [Concomitant]
  5. PRILOSEC [Concomitant]
  6. LEXAPRO [Concomitant]
  7. ASPIRIN [Concomitant]
  8. ARICEPT [Concomitant]
  9. CARDIZEM CD [Concomitant]
  10. LASIX [Concomitant]
  11. COUMADIN [Concomitant]
  12. RISPERDAL [Concomitant]
  13. NAMENDA [Concomitant]

REACTIONS (4)
  - CARDIOACTIVE DRUG LEVEL ABOVE THERAPEUTIC [None]
  - DEHYDRATION [None]
  - FALL [None]
  - TRAUMATIC BRAIN INJURY [None]
